FAERS Safety Report 4985035-2 (Version None)
Quarter: 2006Q2

REPORT INFORMATION
  Report Type: 
  Country: None (occurrence: None)
  Receive Date: 20060421
  Receipt Date: 20060411
  Transmission Date: 20061013
  Serious: Yes (Other)
  Sender: FDA-Public Use
  Company Number: 2006049410

PATIENT
  Sex: Male

DRUGS (1)
  1. LINEZOLID [Suspect]
     Indication: CATHETER RELATED INFECTION
     Dosage: 1200 MG (600 MG, 2 D), ORAL
     Route: 048
     Dates: end: 20060411

REACTIONS (2)
  - NEUROPATHY PERIPHERAL [None]
  - PAIN IN EXTREMITY [None]
